FAERS Safety Report 11788649 (Version 3)
Quarter: 2016Q1

REPORT INFORMATION
  Report Type: Report from Study
  Country: DE (occurrence: DE)
  Receive Date: 20151201
  Receipt Date: 20160302
  Transmission Date: 20160525
  Serious: Yes (Hospitalization, Other)
  Sender: FDA-Public Use
  Company Number: DE-ABBVIE-15K-062-1422846-00

PATIENT
  Age: 53 Year
  Sex: Female
  Weight: 102 kg

DRUGS (3)
  1. HUMIRA [Suspect]
     Active Substance: ADALIMUMAB
     Route: 058
     Dates: start: 20160115
  2. HUMIRA [Suspect]
     Active Substance: ADALIMUMAB
     Indication: CROHN^S DISEASE
     Route: 058
     Dates: start: 20140911, end: 20151102
  3. XARELTO [Suspect]
     Active Substance: RIVAROXABAN
     Indication: THROMBOSIS
     Route: 065
     Dates: start: 201507, end: 201510

REACTIONS (12)
  - Anaemia [Unknown]
  - Intestinal haemorrhage [Unknown]
  - Deep vein thrombosis [Recovering/Resolving]
  - Large intestinal ulcer [Unknown]
  - Deep vein thrombosis [Recovered/Resolved]
  - Feeling hot [Unknown]
  - Haemoglobin decreased [Unknown]
  - Exercise lack of [Unknown]
  - Haemorrhage [Unknown]
  - Erythema [Not Recovered/Not Resolved]
  - Resting tremor [Unknown]
  - Drug ineffective [Unknown]

NARRATIVE: CASE EVENT DATE: 201507
